FAERS Safety Report 5286303-X (Version None)
Quarter: 2007Q2

REPORT INFORMATION
  Report Type: 
  Country: None (occurrence: None)
  Receive Date: 20070404
  Receipt Date: 20070322
  Transmission Date: 20071010
  Serious: Yes (Other)
  Sender: FDA-Public Use
  Company Number: GB-GILEAD-2007-0011734

PATIENT
  Age: 33 Year
  Sex: Male

DRUGS (1)
  1. VISTIDE [Suspect]
     Indication: CYTOMEGALOVIRUS TEST
     Route: 042

REACTIONS (3)
  - MYELOID LEUKAEMIA [None]
  - NEUTROPENIA [None]
  - WHITE BLOOD CELL COUNT DECREASED [None]
